FAERS Safety Report 12943865 (Version 1)
Quarter: 2016Q4

REPORT INFORMATION
  Report Type: Spontaneous
  Country: US (occurrence: US)
  Receive Date: 20161115
  Receipt Date: 20161115
  Transmission Date: 20170207
  Serious: No
  Sender: FDA-Public Use
  Company Number: US-ROCHE-1705915

PATIENT
  Sex: Female

DRUGS (2)
  1. RADIATION THERAPY [Concomitant]
     Active Substance: RADIATION THERAPY
  2. HERCEPTIN [Suspect]
     Active Substance: TRASTUZUMAB
     Indication: PRODUCT USED FOR UNKNOWN INDICATION
     Route: 065

REACTIONS (3)
  - Radiation skin injury [Unknown]
  - Tooth fracture [Unknown]
  - Fatigue [Unknown]
